FAERS Safety Report 8729962 (Version 4)
Quarter: 2013Q2

REPORT INFORMATION
  Report Type: Spontaneous
  Country: US (occurrence: US)
  Receive Date: 20120817
  Receipt Date: 20130430
  Transmission Date: 20140414
  Serious: Yes (Other)
  Sender: FDA-Public Use
  Company Number: US-MPIJNJ-2012-05720

PATIENT
  Age: 75 Year
  Sex: Male
  Weight: 132.2 kg

DRUGS (34)
  1. VELCADE [Suspect]
     Indication: MANTLE CELL LYMPHOMA
     Dosage: 560 MG, QD
     Dates: start: 20120104, end: 20120728
  2. LENALIDOMIDE [Suspect]
     Indication: NON-HODGKIN^S LYMPHOMA
     Dosage: 25 MG, CYCLIC
     Route: 048
     Dates: start: 20090427, end: 20111027
  3. FLOVENT [Concomitant]
     Indication: CHRONIC OBSTRUCTIVE PULMONARY DISEASE
     Dosage: UNK, BID
     Route: 055
     Dates: start: 20080101
  4. FLOVENT [Concomitant]
     Indication: COUGH
     Dosage: 50 UNK, UNK
     Dates: start: 2007
  5. BACTRIM DS [Concomitant]
     Indication: CELLULITIS
     Dosage: UNK, BID
     Route: 048
     Dates: start: 20120126, end: 20120205
  6. K-DUR [Concomitant]
     Indication: MINERAL SUPPLEMENTATION
     Dosage: 20 MG, QD
     Route: 048
     Dates: start: 2007
  7. LASIX                              /00032601/ [Concomitant]
     Indication: ANGINA PECTORIS
     Dosage: 80 MG, BID
     Route: 048
     Dates: start: 2003
  8. LIPITOR [Concomitant]
     Indication: HYPERCHOLESTEROLAEMIA
     Dosage: 40 MG, UNK
     Route: 048
     Dates: start: 2009
  9. PLAVIX                             /01220701/ [Concomitant]
     Indication: ANGINA PECTORIS
     Dosage: 75 MG, QD
     Route: 048
     Dates: start: 2003
  10. ASPIRIN [Concomitant]
     Indication: ANGINA PECTORIS
     Dosage: 325 MG, QD
     Route: 048
     Dates: start: 2003
  11. PROVENTIL                          /00139501/ [Concomitant]
     Indication: CHRONIC OBSTRUCTIVE PULMONARY DISEASE
     Dosage: UNK
     Route: 055
     Dates: start: 2007
  12. NITROQUICK [Concomitant]
     Indication: ANGINA PECTORIS
     Dosage: UNK, PRN
     Route: 048
     Dates: start: 2003
  13. LOSARTAN [Concomitant]
     Indication: HYPERTENSION
     Dosage: 50 MG, QD
     Route: 048
     Dates: start: 2007
  14. LOVAZA [Concomitant]
     Indication: HYPERCHOLESTEROLAEMIA
     Dosage: 2 G, BID
     Route: 048
     Dates: start: 2011
  15. CALCIUM [Concomitant]
     Indication: HYPOVITAMINOSIS
     Dosage: UNK
     Route: 048
     Dates: start: 2010
  16. VITAMIN D /00107901/ [Concomitant]
     Indication: HYPOVITAMINOSIS
     Dosage: UNK
     Dates: start: 2010
  17. MECLIZINE                          /00072801/ [Concomitant]
     Indication: VERTIGO
     Dosage: 25 MG, QD
     Route: 048
     Dates: start: 2010
  18. BACTROBAN                          /00753901/ [Concomitant]
     Indication: RASH
     Dosage: UNK, BID
     Route: 061
     Dates: start: 20120620
  19. OSTEO BI-FLEX [Concomitant]
     Indication: PROPHYLAXIS
     Dosage: UNK, QD
     Route: 048
     Dates: start: 20120301
  20. NEULASTA [Concomitant]
     Indication: PRODUCT USED FOR UNKNOWN INDICATION
  21. AMLODIPINE [Concomitant]
     Indication: PRODUCT USED FOR UNKNOWN INDICATION
     Dosage: 10 MG, UNK
  22. METROGEL [Concomitant]
     Indication: PRODUCT USED FOR UNKNOWN INDICATION
  23. CARVEDILOL [Concomitant]
     Indication: PRODUCT USED FOR UNKNOWN INDICATION
  24. ADVAIR [Concomitant]
     Indication: PRODUCT USED FOR UNKNOWN INDICATION
  25. MUCINEX [Concomitant]
     Indication: PRODUCT USED FOR UNKNOWN INDICATION
  26. PROTONIX                           /01263201/ [Concomitant]
     Indication: PRODUCT USED FOR UNKNOWN INDICATION
  27. SOLU-CORTEF [Concomitant]
     Indication: PRODUCT USED FOR UNKNOWN INDICATION
     Route: 042
  28. ALBUTEROL                          /00139501/ [Concomitant]
     Indication: PRODUCT USED FOR UNKNOWN INDICATION
  29. SPIRIVA [Concomitant]
     Indication: PRODUCT USED FOR UNKNOWN INDICATION
  30. ALDACTONE                          /00006201/ [Concomitant]
     Indication: PRODUCT USED FOR UNKNOWN INDICATION
  31. ANTIVERT                           /00007101/ [Concomitant]
     Indication: PRODUCT USED FOR UNKNOWN INDICATION
  32. NORVASC [Concomitant]
     Indication: PRODUCT USED FOR UNKNOWN INDICATION
  33. PREDNISONE [Concomitant]
     Indication: PRODUCT USED FOR UNKNOWN INDICATION
  34. IBRUTINIB [Concomitant]
     Indication: PRODUCT USED FOR UNKNOWN INDICATION
     Dosage: 560 MG, QD
     Route: 048

REACTIONS (4)
  - Metastases to liver [Not Recovered/Not Resolved]
  - Mantle cell lymphoma [Unknown]
  - Bladder transitional cell carcinoma [Unknown]
  - Second primary malignancy [Unknown]
